FAERS Safety Report 7884369-1 (Version None)
Quarter: 2011Q4

REPORT INFORMATION
  Report Type: 
  Country: None (occurrence: None)
  Receive Date: 20111102
  Receipt Date: 20111024
  Transmission Date: 20120403
  Serious: Yes (Life-Threatening, Other)
  Sender: FDA-Public Use
  Company Number: JP-ROCHE-801435

PATIENT
  Sex: Female
  Weight: 46 kg

DRUGS (2)
  1. GEMCITABINE [Concomitant]
     Indication: LARGE CELL LUNG CANCER RECURRENT
     Dosage: DOSAGE IS UNCERTAIN
     Route: 041
  2. AVASTIN [Suspect]
     Indication: LARGE CELL LUNG CANCER RECURRENT
     Dosage: DOSAGE IS UNCERTAIN
     Route: 041
     Dates: start: 20101115, end: 20110822

REACTIONS (4)
  - HYPERTENSION [None]
  - BLOOD CREATININE INCREASED [None]
  - OROPHARYNGEAL PAIN [None]
  - THROMBOTIC THROMBOCYTOPENIC PURPURA [None]
